FAERS Safety Report 7108179-8 (Version None)
Quarter: 2010Q4

REPORT INFORMATION
  Report Type: 
  Country: None (occurrence: None)
  Receive Date: 20101115
  Receipt Date: 20101115
  Transmission Date: 20110411
  Serious: No
  Sender: FDA-Public Use
  Company Number: None

PATIENT
  Sex: Female
  Weight: 77.1115 kg

DRUGS (1)
  1. COZAAR [Suspect]
     Indication: BLOOD PRESSURE
     Dosage: 50 MG 1 DAILY MOUTH
     Route: 048
     Dates: start: 20100820, end: 20100910

REACTIONS (7)
  - ABDOMINAL PAIN [None]
  - ABDOMINAL PAIN UPPER [None]
  - DIZZINESS [None]
  - FATIGUE [None]
  - GAIT DISTURBANCE [None]
  - MALAISE [None]
  - PAIN [None]
